FAERS Safety Report 6440158-6 (Version None)
Quarter: 2009Q4

REPORT INFORMATION
  Report Type: 
  Country: None (occurrence: None)
  Receive Date: 20091113
  Receipt Date: 20090429
  Transmission Date: 20100525
  Serious: No
  Sender: FDA-Public Use
  Company Number: A0781289A

PATIENT
  Age: 77 Year
  Sex: Female

DRUGS (9)
  1. COREG [Suspect]
     Indication: ATRIAL FIBRILLATION
     Dosage: 6.25MG TWICE PER DAY
     Route: 048
     Dates: start: 20050101
  2. DIOVAN [Concomitant]
  3. NITROGLYCERIN [Concomitant]
  4. CORDARONE [Concomitant]
  5. CRESTOR [Concomitant]
  6. ZYRTEC [Concomitant]
  7. WARFARIN SODIUM [Concomitant]
  8. ALPRAZOLAM [Concomitant]
  9. ASPIRIN [Concomitant]

REACTIONS (2)
  - DEPRESSION [None]
  - LETHARGY [None]
